FAERS Safety Report 16240690 (Version 1)
Quarter: 2019Q2

REPORT INFORMATION
  Report Type: Spontaneous
  Country: IT (occurrence: IT)
  Receive Date: 20190425
  Receipt Date: 20190425
  Transmission Date: 20190711
  Serious: Yes (Hospitalization)
  Sender: FDA-Public Use
  Company Number: IT-BAUSCH-BL-2019-012040

PATIENT
  Age: 57 Year
  Sex: Female

DRUGS (3)
  1. VENLAFAXINE HYDROCHLORIDE. [Suspect]
     Active Substance: VENLAFAXINE HYDROCHLORIDE
     Indication: DRUG ABUSE
     Dosage: 12 DOSAGE FORMS (CP) IN TOTAL
     Route: 048
     Dates: start: 20190406, end: 20190406
  2. ARIPIPRAZOLE. [Suspect]
     Active Substance: ARIPIPRAZOLE
     Indication: DRUG ABUSE
     Dosage: 28 DOSAGE FORMS (CP) IN TOTAL
     Route: 048
     Dates: start: 20190406, end: 20190406
  3. TRANQUIRIT [Suspect]
     Active Substance: DIAZEPAM
     Indication: DRUG ABUSE
     Dosage: 1 BOTTLE ABOUT 100 MG IN TOTAL
     Route: 048
     Dates: start: 20190406, end: 20190406

REACTIONS (2)
  - Apraxia [Unknown]
  - Drug abuse [Unknown]

NARRATIVE: CASE EVENT DATE: 20190406
